FAERS Safety Report 5269430-2 (Version None)
Quarter: 2007Q1

REPORT INFORMATION
  Report Type: 
  Country: None (occurrence: None)
  Receive Date: 20070316
  Receipt Date: 20070316
  Transmission Date: 20070707
  Serious: Yes (Other)
  Sender: FDA-Public Use
  Company Number: None

PATIENT
  Age: 30 Year
  Sex: Female
  Weight: 44.4525 kg

DRUGS (1)
  1. SPRYCEL [Suspect]
     Dosage: N/A

REACTIONS (4)
  - ACCIDENTAL EXPOSURE [None]
  - ERYTHEMA [None]
  - OEDEMA PERIPHERAL [None]
  - SKIN BURNING SENSATION [None]
